FAERS Safety Report 5533163-5 (Version None)
Quarter: 2007Q4

REPORT INFORMATION
  Report Type: 
  Country: None (occurrence: None)
  Receive Date: 20071204
  Receipt Date: 20071126
  Transmission Date: 20080405
  Serious: Yes (Other)
  Sender: FDA-Public Use
  Company Number: GB-ROCHE-533703

PATIENT
  Age: 60 Year
  Sex: Male
  Weight: 131 kg

DRUGS (9)
  1. ORLISTAT [Suspect]
     Indication: OBESITY
     Route: 048
     Dates: start: 20070529
  2. CLOPIDOGREL [Concomitant]
     Indication: ANTICOAGULANT THERAPY
     Route: 048
     Dates: start: 20050101
  3. PIOGLITAZONE [Concomitant]
     Route: 048
  4. SIMVASTATIN [Concomitant]
     Dosage: 20MG NOCTE
     Route: 048
  5. FOSINOPRIL SODIUM [Concomitant]
     Indication: HYPERTENSION
     Route: 048
  6. 1 CONCOMITANT DRUG [Concomitant]
     Dosage: DRUG NAME REPORTED AS LEVERMIR. 40 UNITS NOCTE
     Route: 058
  7. NOVORAPID [Concomitant]
     Route: 058
  8. 1 CONCOMITANT DRUG [Concomitant]
     Dosage: DRUG NAME REPOPRTED AS HYDROYZINE
     Route: 048
  9. 1 CONCOMITANT DRUG [Concomitant]
     Dosage: DRUG NAME REPORTED AS OPANTOPRAZOLE.
     Route: 048

REACTIONS (1)
  - THROAT CANCER [None]
